FAERS Safety Report 4716426-2 (Version None)
Quarter: 2005Q3

REPORT INFORMATION
  Report Type: 
  Country: None (occurrence: None)
  Receive Date: 20050719
  Receipt Date: 20050707
  Transmission Date: 20060218
  Serious: Yes (Other)
  Sender: FDA-Public Use
  Company Number: US-JNJFOC-20050701558

PATIENT
  Sex: Female

DRUGS (18)
  1. INFLIXIMAB [Suspect]
     Indication: RHEUMATOID ARTHRITIS
     Route: 042
  2. PROVENTIL [Concomitant]
  3. COUMADIN [Concomitant]
  4. ZESTRIL [Concomitant]
  5. FOLIC ACID [Concomitant]
  6. LEXAPRO [Concomitant]
  7. LANOXIN [Concomitant]
  8. DETROL [Concomitant]
  9. METHOTREXATE [Concomitant]
  10. PREDNISONE [Concomitant]
  11. ULTRACET [Concomitant]
  12. XANAX [Concomitant]
  13. ZOCOR [Concomitant]
  14. ACTONEL [Concomitant]
  15. ARICEPT [Concomitant]
  16. LOTREL [Concomitant]
  17. LOTREL [Concomitant]
  18. NITROGLYCERIN [Concomitant]

REACTIONS (1)
  - BASAL CELL CARCINOMA [None]
